FAERS Safety Report 6441191-0 (Version None)
Quarter: 2009Q4

REPORT INFORMATION
  Report Type: 
  Country: None (occurrence: None)
  Receive Date: 20091116
  Receipt Date: 20091110
  Transmission Date: 20100525
  Serious: Yes (Death, Life-Threatening, Hospitalization, Other)
  Sender: FDA-Public Use
  Company Number: US-ASTRAZENECA-2008UW12400

PATIENT
  Age: 45 Year
  Sex: Male
  Weight: 103.4 kg

DRUGS (4)
  1. CRESTOR [Suspect]
     Indication: BLOOD CHOLESTEROL INCREASED
     Route: 048
     Dates: start: 20060814, end: 20080604
  2. CRESTOR [Suspect]
     Route: 048
     Dates: start: 20060101
  3. LISINOPRIL [Concomitant]
  4. HYDROCHLOROTHIAZIDE [Concomitant]

REACTIONS (6)
  - FATIGUE [None]
  - GASTRIC CANCER STAGE IV [None]
  - HEADACHE [None]
  - HEPATIC CANCER STAGE IV [None]
  - LUNG CARCINOMA CELL TYPE UNSPECIFIED STAGE IV [None]
  - PYREXIA [None]
